FAERS Safety Report 9680038 (Version 3)
Quarter: 2014Q1

REPORT INFORMATION
  Report Type: Spontaneous
  Country: US (occurrence: US)
  Receive Date: 20131110
  Receipt Date: 20140317
  Transmission Date: 20141002
  Serious: No
  Sender: FDA-Public Use
  Company Number: US-SA-2013SA107569

PATIENT
  Age: 57 Year
  Sex: Female

DRUGS (2)
  1. KYNAMRO [Suspect]
     Indication: TYPE IIA HYPERLIPIDAEMIA
     Route: 058
     Dates: start: 20131018
  2. KYNAMRO [Suspect]
     Indication: TYPE IIA HYPERLIPIDAEMIA
     Route: 058
     Dates: start: 20140117

REACTIONS (6)
  - Injection site pruritus [Recovered/Resolved]
  - Injection site erythema [Not Recovered/Not Resolved]
  - Alanine aminotransferase increased [Not Recovered/Not Resolved]
  - Injection site erythema [Not Recovered/Not Resolved]
  - Injection site pruritus [Not Recovered/Not Resolved]
  - Drug dose omission [Unknown]
